FAERS Safety Report 20594482 (Version 5)
Quarter: 2022Q2

REPORT INFORMATION
  Report Type: Report from Study
  Country: US (occurrence: US)
  Receive Date: 20220315
  Receipt Date: 20220527
  Transmission Date: 20220720
  Serious: No
  Sender: FDA-Public Use
  Company Number: US-BIOVITRUM-2022US03645

PATIENT
  Sex: Female

DRUGS (1)
  1. KINERET [Suspect]
     Active Substance: ANAKINRA
     Indication: Product used for unknown indication
     Route: 058

REACTIONS (14)
  - Loss of personal independence in daily activities [Unknown]
  - Contusion [Recovering/Resolving]
  - Feeling hot [Recovering/Resolving]
  - Dry eye [Unknown]
  - Burning sensation [Unknown]
  - Procedural pain [Unknown]
  - Injection site rash [Unknown]
  - Injection site swelling [Unknown]
  - Injection site pain [Unknown]
  - Injection site reaction [Unknown]
  - Injection site induration [Unknown]
  - Injection site urticaria [Unknown]
  - Injection site mass [Unknown]
  - Intentional dose omission [Unknown]
